FAERS Safety Report 11107133 (Version 1)
Quarter: 2015Q2

REPORT INFORMATION
  Report Type: Spontaneous
  Country: FR (occurrence: FR)
  Receive Date: 20150512
  Receipt Date: 20150512
  Transmission Date: 20150821
  Serious: Yes (Hospitalization)
  Sender: FDA-Public Use
  Company Number: FR-TEVA-561154ISR

PATIENT
  Age: 22 Year
  Sex: Female

DRUGS (3)
  1. LEELOO 0.1 MG/0.02 MG [Suspect]
     Active Substance: ETHINYL ESTRADIOL\LEVONORGESTREL
     Dosage: STARTING ONE YEAR EARLIER
     Route: 048
     Dates: start: 2014
  2. XYZALL [Concomitant]
     Active Substance: LEVOCETIRIZINE DIHYDROCHLORIDE
     Dosage: STARTING FOUR YEARS EARLIER
  3. FIXORINOX [Concomitant]
     Dosage: PUNCTUAL INTAKES

REACTIONS (6)
  - Intracranial pressure increased [Recovered/Resolved]
  - Papilloedema [Recovered/Resolved]
  - Headache [Recovering/Resolving]
  - Visual acuity reduced [Recovering/Resolving]
  - Nausea [Unknown]
  - Vomiting [Unknown]

NARRATIVE: CASE EVENT DATE: 20150318
